FAERS Safety Report 21859937 (Version 3)
Quarter: 2023Q1

REPORT INFORMATION
  Report Type: Report from Study
  Country: FR (occurrence: FR)
  Receive Date: 20230113
  Receipt Date: 20230119
  Transmission Date: 20230417
  Serious: Yes (Hospitalization)
  Sender: FDA-Public Use
  Company Number: FR-002147023-NVSC2022FR298525

PATIENT
  Age: 56 Year
  Sex: Female
  Weight: 48 kg

DRUGS (9)
  1. TRAMETINIB [Suspect]
     Active Substance: TRAMETINIB
     Indication: Neoplasm
     Dosage: 2 MG, QD
     Route: 048
     Dates: start: 20221214, end: 20221218
  2. TRAMETINIB [Suspect]
     Active Substance: TRAMETINIB
     Dosage: UNK
     Route: 048
     Dates: start: 20221227
  3. DABRAFENIB [Suspect]
     Active Substance: DABRAFENIB
     Indication: Neoplasm
     Dosage: 300 MG, QD
     Route: 048
     Dates: start: 20221213, end: 20221218
  4. DABRAFENIB [Suspect]
     Active Substance: DABRAFENIB
     Dosage: 100 MG, BID
     Route: 048
     Dates: start: 20221227
  5. PLAQUENIL [Concomitant]
     Active Substance: HYDROXYCHLOROQUINE SULFATE
     Indication: Systemic lupus erythematosus
     Dosage: 400 MG, QD
     Route: 048
  6. MORPHINE [Concomitant]
     Active Substance: MORPHINE
     Indication: Product used for unknown indication
     Dosage: 8 DROPS, QD
     Route: 048
  7. AMITRIPTYLINE HYDROCHLORIDE [Concomitant]
     Active Substance: AMITRIPTYLINE HYDROCHLORIDE
     Indication: Product used for unknown indication
     Dosage: 8 DROPS, QD
     Route: 048
  8. SOLUPRED [Concomitant]
     Indication: Product used for unknown indication
     Dosage: 30 MG, QD
     Route: 065
  9. FENTANYL [Concomitant]
     Active Substance: FENTANYL
     Indication: Pain
     Dosage: 25 UG, EVERY 3 DAYS
     Route: 048

REACTIONS (1)
  - Performance status decreased [Recovered/Resolved]

NARRATIVE: CASE EVENT DATE: 20221217
